FAERS Safety Report 5897955-5 (Version None)
Quarter: 2008Q3

REPORT INFORMATION
  Report Type: 
  Country: None (occurrence: None)
  Receive Date: 20080924
  Receipt Date: 20080924
  Transmission Date: 20090109
  Serious: Yes (Death, Hospitalization)
  Sender: FDA-Public Use
  Company Number: None

PATIENT
  Age: 78 Year

DRUGS (1)
  1. VISIPAQUE [Suspect]
     Indication: CATHETERISATION CARDIAC
     Dosage: MG ONCE IV
     Route: 042
     Dates: start: 20080428, end: 20080428

REACTIONS (7)
  - AZOTAEMIA [None]
  - CARDIAC FAILURE [None]
  - HAEMODIALYSIS [None]
  - HYPOTENSION [None]
  - NEPHROPATHY TOXIC [None]
  - RENAL FAILURE ACUTE [None]
  - RENAL TUBULAR NECROSIS [None]
